FAERS Safety Report 11517143 (Version 1)
Quarter: 2015Q3

REPORT INFORMATION
  Report Type: Spontaneous
  Country: US (occurrence: None)
  Receive Date: 20150916
  Receipt Date: 20150916
  Transmission Date: 20151125
  Serious: No
  Sender: FDA-Public Use
  Company Number: None

PATIENT
  Age: 72 Year
  Sex: Female
  Weight: 61.24 kg

DRUGS (14)
  1. MEDROXYPROGESTERIN [Concomitant]
  2. FEXOFENADINE [Concomitant]
     Active Substance: FEXOFENADINE\FEXOFENADINE HYDROCHLORIDE
  3. MULTI VIT [Concomitant]
  4. LEVOXYL [Concomitant]
     Active Substance: LEVOTHYROXINE SODIUM
  5. D3 [Concomitant]
     Active Substance: 25-HYDROXYCHOLECALCIFEROL, 5-TRANS-
  6. VITAMIN C [Concomitant]
     Active Substance: ASCORBIC ACID
  7. CITRACAL + D3 [Concomitant]
  8. NITROFURANTOIN MACROCRYSTALS [Suspect]
     Active Substance: NITROFURANTOIN
     Indication: URINARY TRACT INFECTION
     Route: 048
     Dates: start: 20150818, end: 20150824
  9. MAGDX [Concomitant]
  10. LUTEIN [Concomitant]
     Active Substance: LUTEIN
  11. PROPAFENONE ER [Concomitant]
  12. MENEST [Concomitant]
     Active Substance: ESTROGENS, ESTERIFIED
  13. VITAMIN B12 [Concomitant]
     Active Substance: CYANOCOBALAMIN
  14. ECOTRIN ASPIRIN [Concomitant]

REACTIONS (6)
  - Pruritus [None]
  - Skin discolouration [None]
  - Pain in extremity [None]
  - Myalgia [None]
  - Eyelid pain [None]
  - Discomfort [None]

NARRATIVE: CASE EVENT DATE: 20150823
